FAERS Safety Report 4981115-6 (Version None)
Quarter: 2006Q2

REPORT INFORMATION
  Report Type: 
  Country: None (occurrence: None)
  Receive Date: 20060424
  Receipt Date: 20060420
  Transmission Date: 20061013
  Serious: Yes (Other)
  Sender: FDA-Public Use
  Company Number: US-JNJFOC-20060404634

PATIENT
  Sex: Female
  Weight: 72.58 kg

DRUGS (2)
  1. LEVAQUIN [Suspect]
     Route: 048
  2. OMNICEF [Concomitant]

REACTIONS (6)
  - BODY TEMPERATURE INCREASED [None]
  - DYSARTHRIA [None]
  - DYSPNOEA [None]
  - PARAESTHESIA [None]
  - RASH [None]
  - SWELLING FACE [None]
